FAERS Safety Report 14910206 (Version 1)
Quarter: 2018Q2

REPORT INFORMATION
  Report Type: Spontaneous
  Country: US (occurrence: US)
  Receive Date: 20180517
  Receipt Date: 20180517
  Transmission Date: 20180711
  Serious: Yes (Death)
  Sender: FDA-Public Use
  Company Number: US-TEVA-2018-US-892525

PATIENT
  Age: 48 Year
  Sex: Male

DRUGS (2)
  1. CISPLATIN. [Suspect]
     Active Substance: CISPLATIN
     Indication: CHOLANGIOCARCINOMA
     Route: 065
  2. GEMCITABINE [Suspect]
     Active Substance: GEMCITABINE\GEMCITABINE HYDROCHLORIDE
     Indication: CHOLANGIOCARCINOMA
     Route: 065

REACTIONS (5)
  - Systolic dysfunction [Fatal]
  - Electrocardiogram ST segment elevation [Fatal]
  - Ventricular fibrillation [Fatal]
  - Prinzmetal angina [Fatal]
  - Cardiac arrest [Fatal]
